FAERS Safety Report 18362362 (Version 1)
Quarter: 2020Q4

REPORT INFORMATION
  Report Type: Spontaneous
  Country: SE (occurrence: SE)
  Receive Date: 20201009
  Receipt Date: 20201009
  Transmission Date: 20210114
  Serious: Yes (Other)
  Sender: FDA-Public Use
  Company Number: SE-AUROBINDO-AUR-APL-2020-051094

PATIENT
  Age: 75 Year
  Sex: Female

DRUGS (1)
  1. METOPROLOL FILM-COATED TABLET [Suspect]
     Active Substance: METOPROLOL
     Indication: CARDIAC FIBRILLATION
     Dosage: 25 MILLIGRAM, ONCE A DAY
     Route: 065
     Dates: start: 20200502

REACTIONS (14)
  - Back pain [Recovering/Resolving]
  - Dyspnoea [Recovering/Resolving]
  - Night sweats [Recovering/Resolving]
  - Memory impairment [Recovering/Resolving]
  - Nervousness [Recovering/Resolving]
  - Asocial behaviour [Recovering/Resolving]
  - Disturbance in attention [Recovering/Resolving]
  - Personality change [Recovering/Resolving]
  - Nasal congestion [Recovering/Resolving]
  - Tinnitus [Recovering/Resolving]
  - Head discomfort [Recovering/Resolving]
  - Depression [Recovering/Resolving]
  - Confusional state [Recovering/Resolving]
  - Dizziness [Recovering/Resolving]

NARRATIVE: CASE EVENT DATE: 202005
